FAERS Safety Report 25818401 (Version 3)
Quarter: 2025Q3

REPORT INFORMATION
  Report Type: Report from Study
  Country: US (occurrence: US)
  Receive Date: 20250918
  Receipt Date: 20250930
  Transmission Date: 20251020
  Serious: Yes (Other)
  Sender: TAKEDA
  Company Number: US-TAKEDA-2025TUS080144

PATIENT
  Age: 72 Year
  Sex: Male

DRUGS (6)
  1. VEDOLIZUMAB [Suspect]
     Active Substance: VEDOLIZUMAB
     Indication: Crohn^s disease
     Dosage: 108 MILLIGRAM, Q2WEEKS
     Dates: start: 20250210
  2. VEDOLIZUMAB [Suspect]
     Active Substance: VEDOLIZUMAB
  3. XARELTO [Concomitant]
     Active Substance: RIVAROXABAN
  4. METOPROLOL [Concomitant]
     Active Substance: METOPROLOL
  5. TORSEMIDE [Concomitant]
     Active Substance: TORSEMIDE
  6. RIZATRIPTAN [Concomitant]
     Active Substance: RIZATRIPTAN

REACTIONS (3)
  - Crohn^s disease [Recovered/Resolved]
  - Device malfunction [Recovered/Resolved]
  - Inappropriate schedule of product administration [Recovering/Resolving]

NARRATIVE: CASE EVENT DATE: 20250916
